FAERS Safety Report 4906613-2 (Version None)
Quarter: 2006Q1

REPORT INFORMATION
  Report Type: 
  Country: None (occurrence: None)
  Receive Date: 20060209
  Receipt Date: 20060117
  Transmission Date: 20060701
  Serious: Yes (Other)
  Sender: FDA-Public Use
  Company Number: DK-GLAXOSMITHKLINE-B0407660A

PATIENT
  Age: 49 Year
  Sex: Male

DRUGS (4)
  1. VENTOLIN [Suspect]
     Indication: ASTHMA
     Route: 055
  2. FLIXOTIDE [Concomitant]
     Indication: ASTHMA
  3. PREDNISOLONE [Concomitant]
  4. BRICANYL [Concomitant]

REACTIONS (7)
  - ANXIETY [None]
  - ASTHMA [None]
  - FEELING JITTERY [None]
  - HYPERACUSIS [None]
  - HYPERSENSITIVITY [None]
  - STRESS [None]
  - TINNITUS [None]
